FAERS Safety Report 9406332 (Version 4)
Quarter: 2013Q3

REPORT INFORMATION
  Report Type: Spontaneous
  Country: FR (occurrence: FR)
  Receive Date: 20130717
  Receipt Date: 20130802
  Transmission Date: 20140515
  Serious: Yes (Hospitalization)
  Sender: FDA-Public Use
  Company Number: FR-PFIZER INC-2013205768

PATIENT
  Age: 77 Year
  Sex: Female

DRUGS (23)
  1. MEDROL [Suspect]
     Dosage: 16 MG DAILY
     Route: 048
     Dates: start: 20130621, end: 20130623
  2. MEDROL [Suspect]
     Dosage: 8 MG DAILY
     Route: 048
     Dates: start: 20130623, end: 20130624
  3. TRIATEC [Suspect]
     Indication: HYPERTENSION
     Dosage: 1.25 MG DAILY
     Route: 048
     Dates: start: 20130628, end: 20130701
  4. CEFTRIAXONE DAKOTA PHARM [Suspect]
     Indication: LUNG INFECTION
     Dosage: 2 G, 1X/DAY (AT NOON)
     Route: 042
     Dates: start: 20130622, end: 20130625
  5. GALVUS [Suspect]
     Indication: TYPE 2 DIABETES MELLITUS
     Dosage: 50 MG DAILY
     Route: 048
     Dates: start: 20130626, end: 20130701
  6. PREVISCAN [Suspect]
     Indication: THROMBOSIS PROPHYLAXIS
     Dosage: 15MG DAILY
     Route: 048
     Dates: start: 20130627, end: 20130701
  7. LOXEN [Suspect]
     Indication: HYPERTENSION
     Dosage: 50 MG, 2X/DAY
     Route: 048
     Dates: start: 20130621, end: 20130701
  8. AMOXICILLINE / ACIDE CLAVULANIQUE [Suspect]
     Indication: LUNG INFECTION
     Dosage: SANDOZ ADULTE, 1 DF, 3X/DAY
     Route: 048
     Dates: start: 20130626, end: 20130628
  9. FUROSEMIDE [Concomitant]
     Dosage: 40 MG
  10. ULTRA-LEVURE [Concomitant]
     Dosage: UNK
     Dates: start: 20130626
  11. DOMPERIDONE [Concomitant]
     Dosage: UNK
     Dates: start: 20130628
  12. BISOCE [Concomitant]
     Dosage: UNK
     Dates: start: 20130630
  13. FORLAX [Concomitant]
     Dosage: 4000
     Dates: start: 20130630
  14. RISORDAN [Concomitant]
     Dosage: 10 MG
     Route: 042
  15. EUPRESSYL [Concomitant]
     Dosage: 100 MG
     Route: 042
  16. CORDARONE [Concomitant]
     Dosage: 200 MG, 5 DAYS OUT OF 7
  17. INEXIUM [Concomitant]
     Dosage: 20 MG
  18. TAHOR [Concomitant]
     Dosage: 10 MG, UNK
  19. INSULINE [Concomitant]
  20. LASILIX [Concomitant]
     Dosage: UNK
     Dates: start: 20130621
  21. CALCIPARINE [Concomitant]
     Dosage: UNK
     Dates: start: 20130617
  22. IPRATROPIUM MERCK [Concomitant]
     Dosage: UNK
  23. TERBUTALINE ARROW [Concomitant]
     Dosage: UNK

REACTIONS (7)
  - Hepatitis [Recovering/Resolving]
  - Jaundice [Recovering/Resolving]
  - Aspartate aminotransferase increased [Recovering/Resolving]
  - Alanine aminotransferase increased [Recovering/Resolving]
  - Blood bilirubin increased [Recovering/Resolving]
  - Gamma-glutamyltransferase increased [Recovering/Resolving]
  - Bilirubin conjugated increased [Recovering/Resolving]
